FAERS Safety Report 7947055-5 (Version None)
Quarter: 2011Q4

REPORT INFORMATION
  Report Type: 
  Country: None (occurrence: None)
  Receive Date: 20111129
  Receipt Date: 20110914
  Transmission Date: 20120403
  Serious: No
  Sender: FDA-Public Use
  Company Number: US-ASTRAZENECA-2011SE55315

PATIENT
  Age: 50 Year
  Sex: Female
  Weight: 63.5 kg

DRUGS (1)
  1. VIMOVO [Suspect]
     Indication: ARTHRALGIA
     Dosage: 500 MG/20 MG DAILY
     Route: 048

REACTIONS (1)
  - SOMNOLENCE [None]
